FAERS Safety Report 25979028 (Version 1)
Quarter: 2025Q4

REPORT INFORMATION
  Report Type: Spontaneous
  Country: US (occurrence: US)
  Receive Date: 20251030
  Receipt Date: 20251030
  Transmission Date: 20260118
  Serious: Yes (Other)
  Sender: MERCK SHARP & DOHME LLC
  Company Number: US-009507513-2341951

PATIENT
  Sex: Male

DRUGS (1)
  1. KEYTRUDA [Suspect]
     Active Substance: PEMBROLIZUMAB
     Indication: Malignant melanoma stage IV
     Dosage: HAD BEEN ON KEYTRUDA FOR 50+ TREATMENTS

REACTIONS (4)
  - Brain operation [Recovered/Resolved]
  - Seizure [Unknown]
  - Pulmonary resection [Recovered/Resolved]
  - Cerebrovascular accident [Unknown]
